FAERS Safety Report 17677080 (Version 2)
Quarter: 2020Q3

REPORT INFORMATION
  Report Type: Spontaneous
  Country: US (occurrence: US)
  Receive Date: 20200416
  Receipt Date: 20200716
  Transmission Date: 20201102
  Serious: No
  Sender: FDA-Public Use
  Company Number: US-AERIE-US-2020-001311

PATIENT

DRUGS (4)
  1. DORZOLAMIDE [Concomitant]
     Active Substance: DORZOLAMIDE
     Indication: GLAUCOMA
     Route: 047
  2. ALBUTEROL                          /00139501/ [Concomitant]
     Active Substance: ALBUTEROL
     Indication: ASTHMA
  3. RHOPRESSA [Suspect]
     Active Substance: NETARSUDIL MESYLATE
     Indication: GLAUCOMA
     Dosage: 2 GTT DROPS, QHS
     Route: 047
     Dates: start: 201806, end: 201906
  4. CROMOLYN SODIUM. [Concomitant]
     Active Substance: CROMOLYN SODIUM

REACTIONS (2)
  - Conjunctival hyperaemia [Not Recovered/Not Resolved]
  - Conjunctival haemorrhage [Recovered/Resolved]
